FAERS Safety Report 15738964 (Version 2)
Quarter: 2019Q1

REPORT INFORMATION
  Report Type: Spontaneous
  Country: US (occurrence: US)
  Receive Date: 20181219
  Receipt Date: 20190115
  Transmission Date: 20190417
  Serious: No
  Sender: FDA-Public Use
  Company Number: US-ASTRAZENECA-2018SF58368

PATIENT
  Age: 743 Month
  Sex: Male
  Weight: 75.8 kg

DRUGS (2)
  1. BYDUREON [Suspect]
     Active Substance: EXENATIDE
     Indication: TYPE 2 DIABETES MELLITUS
     Route: 058
     Dates: start: 201803
  2. METFORMIN [Concomitant]
     Active Substance: METFORMIN HYDROCHLORIDE

REACTIONS (3)
  - Injection site mass [Not Recovered/Not Resolved]
  - Device malfunction [Unknown]
  - Weight decreased [Unknown]

NARRATIVE: CASE EVENT DATE: 201803
